FAERS Safety Report 25944441 (Version 1)
Quarter: 2025Q4

REPORT INFORMATION
  Report Type: Spontaneous
  Country: US (occurrence: None)
  Receive Date: 20251021
  Receipt Date: 20251021
  Transmission Date: 20260118
  Serious: Yes (Other)
  Sender: FDA-CTU
  Company Number: None

PATIENT
  Sex: Male

DRUGS (4)
  1. LENALIDOMIDE [Suspect]
     Active Substance: LENALIDOMIDE
     Indication: Diffuse large B-cell lymphoma
     Dosage: OTHER FREQUENCY : DAILY FOR 21 DAYS/OFF 7 DAYS;?
     Route: 048
     Dates: start: 20250925
  2. LENALIDOMIDE [Concomitant]
     Active Substance: LENALIDOMIDE
  3. MAGNESIUM [Concomitant]
     Active Substance: MAGNESIUM
  4. OMEGA-3 ACIDS [Concomitant]
     Active Substance: OMEGA-3 FATTY ACIDS

REACTIONS (1)
  - Bone cancer [None]
